FAERS Safety Report 4620451-X (Version None)
Quarter: 2005Q1

REPORT INFORMATION
  Report Type: 
  Country: None (occurrence: None)
  Receive Date: 20050324
  Receipt Date: 20050311
  Transmission Date: 20050727
  Serious: Yes (Death)
  Sender: FDA-Public Use
  Company Number: DSA_81225_2005

PATIENT
  Age: 56 Year
  Sex: Female

DRUGS (6)
  1. XYREM [Suspect]
     Indication: INSOMNIA
     Dosage: DF PO
     Route: 048
     Dates: start: 20050121
  2. OXYCODONE [Concomitant]
  3. PAROXETINE HCL [Concomitant]
  4. CHLORDIAZEPOXIDE [Concomitant]
  5. LAMOTRIGNE [Concomitant]
  6. THORAZINE [Concomitant]

REACTIONS (1)
  - DRUG INEFFECTIVE [None]
